FAERS Safety Report 9377763 (Version 1)
Quarter: 2013Q3

REPORT INFORMATION
  Report Type: Spontaneous
  Country: US (occurrence: US)
  Receive Date: 20130701
  Receipt Date: 20130701
  Transmission Date: 20140515
  Serious: No
  Sender: FDA-Public Use
  Company Number: US-TEVA-416014USA

PATIENT
  Sex: Female

DRUGS (1)
  1. GABITRIL [Suspect]
     Indication: ANXIETY

REACTIONS (1)
  - Off label use [Not Recovered/Not Resolved]
